FAERS Safety Report 11256179 (Version 2)
Quarter: 2015Q3

REPORT INFORMATION
  Report Type: Spontaneous
  Country: JP (occurrence: JP)
  Receive Date: 20150709
  Receipt Date: 20150928
  Transmission Date: 20151125
  Serious: Yes (Other)
  Sender: FDA-Public Use
  Company Number: JP-BAYER-2015-371245

PATIENT
  Sex: Male

DRUGS (1)
  1. ACETYLSALICYLIC ACID (} 100 MG) [Suspect]
     Active Substance: ASPIRIN
     Indication: ANGINA PECTORIS
     Dosage: 100 MG, QD
     Route: 048

REACTIONS (3)
  - Colitis microscopic [Recovered/Resolved]
  - Gastritis erosive [Recovered/Resolved]
  - Colon injury [Recovered/Resolved]
